FAERS Safety Report 20969457 (Version 1)
Quarter: 2022Q2

REPORT INFORMATION
  Report Type: Spontaneous
  Country: US (occurrence: None)
  Receive Date: 20220616
  Receipt Date: 20220616
  Transmission Date: 20220721
  Serious: Yes (Other)
  Sender: FDA-Public Use
  Company Number: None

PATIENT
  Age: 68 Year
  Sex: Male

DRUGS (8)
  1. BUPROPION HYDROCHLORIDE [Suspect]
     Active Substance: BUPROPION HYDROCHLORIDE
     Indication: Depression
     Dosage: OTHER QUANTITY : 1 TABLET(S);?
     Route: 048
  2. Wellbutrin 100 SR, [Concomitant]
  3. Xanax. 25 [Concomitant]
  4. prilosec 20 mg [Concomitant]
  5. atorvastatin 10 mg, [Concomitant]
  6. Zetia 10 mg [Concomitant]
  7. Norco 5/325 1?a day [Concomitant]
  8. Centrum minis men 50+ [Concomitant]

REACTIONS (6)
  - Product substitution issue [None]
  - Anxiety [None]
  - Fear [None]
  - Atrial fibrillation [None]
  - Acne [None]
  - Gastritis [None]

NARRATIVE: CASE EVENT DATE: 20220401
